FAERS Safety Report 16465486 (Version 2)
Quarter: 2021Q1

REPORT INFORMATION
  Report Type: Report from Study
  Country: US (occurrence: US)
  Receive Date: 20190621
  Receipt Date: 20210126
  Transmission Date: 20210419
  Serious: Yes (Other)
  Sender: FDA-Public Use
  Company Number: US-SHIRE-US201920045

PATIENT
  Sex: Male

DRUGS (1)
  1. IDURSULFASE [Suspect]
     Active Substance: IDURSULFASE
     Indication: MUCOPOLYSACCHARIDOSIS II
     Dosage: 6 DOSAGE FORM, 1/WEEK
     Route: 042
     Dates: start: 20140819

REACTIONS (2)
  - Product dose omission issue [Recovered/Resolved]
  - Nasopharyngitis [Not Recovered/Not Resolved]
